FAERS Safety Report 14346600 (Version 3)
Quarter: 2018Q3

REPORT INFORMATION
  Report Type: Spontaneous
  Country: JP (occurrence: JP)
  Receive Date: 20180103
  Receipt Date: 20180807
  Transmission Date: 20181010
  Serious: Yes (Death, Life-Threatening, Hospitalization, Other)
  Sender: FDA-Public Use
  Company Number: JP-MYLANLABS-2017M1082080

PATIENT
  Age: 48 Year
  Sex: Female
  Weight: 54 kg

DRUGS (5)
  1. ACYCLOVIR. [Suspect]
     Active Substance: ACYCLOVIR
     Dosage: 250 MG, QD
     Route: 041
     Dates: start: 20171210, end: 20171210
  2. ACICLOVIR [Suspect]
     Active Substance: ACYCLOVIR
     Indication: HERPES ZOSTER
     Dosage: 400 MG, Q5D
     Route: 048
     Dates: start: 20171209
  3. ACYCLOVIR. [Suspect]
     Active Substance: ACYCLOVIR
     Indication: HERPES ZOSTER
     Dosage: UNK
     Route: 041
     Dates: start: 20171209
  4. PREDNISOLONE. [Concomitant]
     Active Substance: PREDNISOLONE
     Indication: PRODUCT USED FOR UNKNOWN INDICATION
  5. THYRADIN S [Concomitant]
     Active Substance: LEVOTHYROXINE SODIUM
     Indication: PRODUCT USED FOR UNKNOWN INDICATION

REACTIONS (12)
  - Dyskinesia [Unknown]
  - Altered state of consciousness [Unknown]
  - Inappropriate schedule of drug administration [Unknown]
  - Toxic encephalopathy [Unknown]
  - Disorientation [Unknown]
  - Hepatic failure [Unknown]
  - Depressed level of consciousness [Not Recovered/Not Resolved]
  - Disorganised speech [Unknown]
  - Renal impairment [Unknown]
  - Cardio-respiratory arrest [Unknown]
  - Multiple organ dysfunction syndrome [Fatal]
  - Psychiatric symptom [Unknown]

NARRATIVE: CASE EVENT DATE: 20171208
